FAERS Safety Report 5011745-7 (Version None)
Quarter: 2006Q2

REPORT INFORMATION
  Report Type: 
  Country: None (occurrence: None)
  Receive Date: 20060526
  Receipt Date: 20060512
  Transmission Date: 20061013
  Serious: Yes (Death, Hospitalization)
  Sender: FDA-Public Use
  Company Number: FR-JNJFOC-20060503020

PATIENT
  Age: 90 Year
  Sex: Male

DRUGS (1)
  1. REMINYL [Suspect]
     Route: 048

REACTIONS (1)
  - RENAL FAILURE ACUTE [None]
